FAERS Safety Report 19692931 (Version 2)
Quarter: 2021Q3

REPORT INFORMATION
  Report Type: Spontaneous
  Country: US (occurrence: US)
  Receive Date: 20210812
  Receipt Date: 20210818
  Transmission Date: 20211014
  Serious: Yes (Hospitalization)
  Sender: FDA-Public Use
  Company Number: US-TEVA-2021-US-1940714

PATIENT
  Age: 12 Year
  Sex: Female

DRUGS (5)
  1. ETHINYLESTRADIOL/NORGESTREL [Suspect]
     Active Substance: ETHINYL ESTRADIOL\NORGESTREL
     Indication: ABNORMAL UTERINE BLEEDING
     Route: 065
  2. ETHINYLESTRADIOL/NORGESTREL [Suspect]
     Active Substance: ETHINYL ESTRADIOL\NORGESTREL
     Route: 065
  3. IRON [Concomitant]
     Active Substance: IRON
     Indication: NORMOCYTIC ANAEMIA
     Route: 065
  4. ETHINYLESTRADIOL/NORGESTREL [Suspect]
     Active Substance: ETHINYL ESTRADIOL\NORGESTREL
     Route: 065
  5. ETHINYLESTRADIOL/NORGESTREL [Suspect]
     Active Substance: ETHINYL ESTRADIOL\NORGESTREL
     Route: 065

REACTIONS (1)
  - Decidual cast [Recovered/Resolved]
